FAERS Safety Report 13029837 (Version 1)
Quarter: 2016Q4

REPORT INFORMATION
  Report Type: Spontaneous
  Country: US (occurrence: US)
  Receive Date: 20161214
  Receipt Date: 20161214
  Transmission Date: 20170207
  Serious: Yes (Other)
  Sender: FDA-Public Use
  Company Number: None

PATIENT
  Age: 42 Year
  Sex: Female
  Weight: 70.65 kg

DRUGS (7)
  1. PHENOBARBITAL. [Concomitant]
     Active Substance: PHENOBARBITAL
  2. DEPAKOTE [Concomitant]
     Active Substance: DIVALPROEX SODIUM
  3. OMEPROZOLE [Concomitant]
     Active Substance: OMEPRAZOLE
  4. PLAQUENIL [Concomitant]
     Active Substance: HYDROXYCHLOROQUINE SULFATE
  5. AUGMENTIN [Suspect]
     Active Substance: AMOXICILLIN\CLAVULANATE POTASSIUM
     Indication: SINUSITIS
     Dosage: ?          QUANTITY:1 TABLET(S); EVERY 12 HOURS?
     Route: 048
     Dates: start: 20161209, end: 20161213
  6. GABAPENTIN. [Concomitant]
     Active Substance: GABAPENTIN
  7. MOBIC [Concomitant]
     Active Substance: MELOXICAM

REACTIONS (2)
  - Diarrhoea [None]
  - Abdominal pain upper [None]

NARRATIVE: CASE EVENT DATE: 20161213
